FAERS Safety Report 9846873 (Version 1)
Quarter: 2014Q1

REPORT INFORMATION
  Report Type: Spontaneous
  Country: DK (occurrence: DK)
  Receive Date: 20140127
  Receipt Date: 20140127
  Transmission Date: 20141002
  Serious: Yes (Life-Threatening, Hospitalization, Other)
  Sender: FDA-Public Use
  Company Number: DK-PFIZER INC-2014022349

PATIENT
  Age: 69 Year
  Sex: Male

DRUGS (5)
  1. FLUOROURACIL [Suspect]
     Indication: METASTASES TO LIVER
     Dates: start: 20130115
  2. OXALIPLATIN [Concomitant]
     Indication: METASTASES TO LIVER
     Dates: start: 20130115
  3. CALCIUMFOLINAT [Concomitant]
     Indication: METASTASES TO LIVER
     Dates: start: 20130115
  4. MAREVAN [Concomitant]
     Indication: ARRHYTHMIA
     Dates: end: 20130301
  5. INNOHEP [Concomitant]
     Indication: ARRHYTHMIA
     Dates: start: 20130301

REACTIONS (2)
  - Cardiac arrest [Recovered/Resolved]
  - Cardiac pacemaker insertion [Recovered/Resolved]
